FAERS Safety Report 7445423-1 (Version None)
Quarter: 2011Q2

REPORT INFORMATION
  Report Type: 
  Country: None (occurrence: None)
  Receive Date: 20110429
  Receipt Date: 20110421
  Transmission Date: 20111010
  Serious: Yes (Other)
  Sender: FDA-Public Use
  Company Number: PHHO2011US05149

PATIENT
  Sex: Female
  Weight: 60.6 kg

DRUGS (9)
  1. EXELON [Suspect]
     Dosage: UNK
  2. AZATHIOPRINE [Concomitant]
     Indication: MYASTHENIA GRAVIS
  3. PRISTIQ [Concomitant]
     Indication: DEPRESSION
  4. EXELON [Suspect]
     Indication: DEMENTIA ALZHEIMER'S TYPE
     Dosage: 5CM2
     Route: 062
     Dates: start: 20110308, end: 20110311
  5. SIMVASTATIN [Concomitant]
     Indication: HYPERCHOLESTEROLAEMIA
  6. LOSARTAN POTASSIUM AND HYDROCHLOROTHIAZIDE [Concomitant]
     Indication: HYPERTENSION
  7. FOSAMAX [Concomitant]
     Indication: OSTEOPOROSIS
  8. BLINDED NO TREATMENT RECEIVED [Suspect]
     Dosage: UNK
  9. LEVOTHYROXINE SODIUM [Concomitant]
     Indication: HYPOTHYROIDISM

REACTIONS (1)
  - WRONG TECHNIQUE IN DRUG USAGE PROCESS [None]
